FAERS Safety Report 18279847 (Version 2)
Quarter: 2025Q2

REPORT INFORMATION
  Report Type: Report from Study
  Country: IT (occurrence: IT)
  Receive Date: 20200918
  Receipt Date: 20250628
  Transmission Date: 20250716
  Serious: Yes (Other)
  Sender: AUROBINDO
  Company Number: IT-JNJFOC-20200844912

PATIENT
  Age: 48 Year
  Sex: Female

DRUGS (4)
  1. CLOPIDOGREL [Suspect]
     Active Substance: CLOPIDOGREL BISULFATE
     Indication: Antiplatelet therapy
     Route: 065
  2. ASPIRIN [Suspect]
     Active Substance: ASPIRIN
     Indication: Product used for unknown indication
     Route: 065
  3. REOPRO [Suspect]
     Active Substance: ABCIXIMAB
     Indication: Stent placement
     Route: 042
  4. ABCIXIMAB [Concomitant]
     Active Substance: ABCIXIMAB
     Indication: Anticoagulant therapy
     Route: 065

REACTIONS (1)
  - Haemorrhage [Unknown]
